FAERS Safety Report 5490899-2 (Version None)
Quarter: 2007Q4

REPORT INFORMATION
  Report Type: 
  Country: None (occurrence: None)
  Receive Date: 20071019
  Receipt Date: 20071005
  Transmission Date: 20080405
  Serious: Yes (Hospitalization)
  Sender: FDA-Public Use
  Company Number: GB-RANBAXY-2007RR-10543

PATIENT

DRUGS (5)
  1. FUROSEMIDE TABLETS BP 40MG [Suspect]
     Dosage: 60 MG, QD
     Route: 048
     Dates: end: 20070912
  2. CITALOPRAM 10 MG TABLETS [Concomitant]
     Indication: DEPRESSION
     Dosage: 10 MG, UNK
     Route: 048
     Dates: start: 20070906
  3. OMEPRAZOLE [Concomitant]
     Indication: GASTRITIS
     Dosage: 20 MG, UNK
     Route: 048
  4. QUETIAPINE FUMARATE [Concomitant]
     Indication: PSYCHOTIC DISORDER
     Dosage: 50 MG, UNK
     Route: 048
  5. ZOPICLONE [Concomitant]
     Indication: INSOMNIA
     Dosage: 3.75 MG, UNK
     Route: 048

REACTIONS (2)
  - HYPOKALAEMIA [None]
  - RENAL FAILURE ACUTE [None]
